FAERS Safety Report 5057532-5 (Version None)
Quarter: 2006Q3

REPORT INFORMATION
  Report Type: 
  Country: None (occurrence: None)
  Receive Date: 20060721
  Receipt Date: 20051104
  Transmission Date: 20061208
  Serious: No
  Sender: FDA-Public Use
  Company Number: US-GLAXOSMITHKLINE-A0580951A

PATIENT
  Age: 64 Year
  Sex: Female

DRUGS (2)
  1. AVANDIA [Suspect]
     Dosage: 8MG PER DAY
     Route: 048
     Dates: start: 20051026, end: 20051104
  2. ASPIRIN [Concomitant]

REACTIONS (3)
  - COUGH [None]
  - RESPIRATORY DISORDER [None]
  - SNEEZING [None]
